FAERS Safety Report 8545081-9 (Version None)
Quarter: 2012Q3

REPORT INFORMATION
  Report Type: 
  Country: None (occurrence: None)
  Receive Date: 20120727
  Receipt Date: 20120724
  Transmission Date: 20120928
  Serious: Yes (Other)
  Sender: FDA-Public Use
  Company Number: US-ROCHE-1092074

PATIENT
  Age: 63 Year

DRUGS (1)
  1. CELLCEPT [Suspect]
     Indication: PRODUCT USED FOR UNKNOWN INDICATION

REACTIONS (1)
  - OBLITERATIVE BRONCHIOLITIS [None]
